FAERS Safety Report 18343293 (Version 1)
Quarter: 2020Q4

REPORT INFORMATION
  Report Type: Spontaneous
  Country: US (occurrence: US)
  Receive Date: 20201005
  Receipt Date: 20201005
  Transmission Date: 20210113
  Serious: Yes (Other)
  Sender: FDA-Public Use
  Company Number: US-LUPIN PHARMACEUTICALS INC.-2020-06926

PATIENT
  Age: 48 Year
  Sex: Female

DRUGS (6)
  1. OSIMERTINIB. [Concomitant]
     Active Substance: OSIMERTINIB
     Indication: LUNG ADENOCARCINOMA STAGE IV
     Dosage: UNK (STOPPED)
     Route: 065
     Dates: start: 201808
  2. DOXYCYCLINE. [Suspect]
     Active Substance: DOXYCYCLINE
     Indication: RASH
     Dosage: 100 MILLIGRAM, QD
     Route: 048
     Dates: start: 2020
  3. LOPERAMIDE [Concomitant]
     Active Substance: LOPERAMIDE
     Indication: RASH
  4. DOXYCYCLINE. [Suspect]
     Active Substance: DOXYCYCLINE
     Indication: DIARRHOEA
     Dosage: 200 MILLIGRAM, QD
     Route: 048
     Dates: start: 2020
  5. DOXYCYCLINE. [Suspect]
     Active Substance: DOXYCYCLINE
     Indication: COVID-19
     Dosage: UNK UNK, PRN
     Route: 048
     Dates: start: 2020
  6. LOPERAMIDE [Concomitant]
     Active Substance: LOPERAMIDE
     Indication: DIARRHOEA
     Dosage: UNK, PRN
     Route: 065

REACTIONS (1)
  - Off label use [Unknown]

NARRATIVE: CASE EVENT DATE: 2020
